FAERS Safety Report 6350517-8 (Version None)
Quarter: 2009Q3

REPORT INFORMATION
  Report Type: 
  Country: None (occurrence: None)
  Receive Date: 20090911
  Receipt Date: 20090622
  Transmission Date: 20100115
  Serious: No
  Sender: FDA-Public Use
  Company Number: US-ABBOTT-07P-163-0365002-00

PATIENT
  Sex: Male
  Weight: 147 kg

DRUGS (5)
  1. HUMIRA [Suspect]
     Indication: PSORIATIC ARTHROPATHY
     Route: 058
     Dates: start: 20060101
  2. CYCLOSPORINE [Concomitant]
     Indication: DRUG EFFECT PROLONGED
     Route: 048
  3. LISINOPRIL [Concomitant]
     Indication: BLOOD CHOLESTEROL
     Route: 048
  4. PRILOSEC OTC [Concomitant]
     Indication: EROSIVE OESOPHAGITIS
     Route: 048
  5. UNKNOWN CHOLESTEROL MED [Concomitant]
     Indication: BLOOD CHOLESTEROL
     Route: 048

REACTIONS (2)
  - INCORRECT DOSE ADMINISTERED [None]
  - INJECTION SITE HAEMATOMA [None]
